FAERS Safety Report 10203705 (Version 2)
Quarter: 2014Q2

REPORT INFORMATION
  Report Type: Report from Study
  Country: FR (occurrence: FR)
  Receive Date: 20140529
  Receipt Date: 20140609
  Transmission Date: 20141212
  Serious: Yes (Hospitalization)
  Sender: FDA-Public Use
  Company Number: FR-JNJFOC-20140514110

PATIENT
  Age: 18 Year
  Sex: Male
  Weight: 60.3 kg

DRUGS (2)
  1. REMICADE [Suspect]
     Indication: CROHN^S DISEASE
     Route: 042
     Dates: start: 20130114
  2. AZATHIOPRINE [Concomitant]
     Route: 065

REACTIONS (1)
  - Herpes zoster [Recovered/Resolved]
